FAERS Safety Report 6861934-1 (Version None)
Quarter: 2010Q3

REPORT INFORMATION
  Report Type: 
  Country: None (occurrence: None)
  Receive Date: 20100720
  Receipt Date: 20100720
  Transmission Date: 20110219
  Serious: Yes (Hospitalization)
  Sender: FDA-Public Use
  Company Number: None

PATIENT
  Age: 62 Year
  Sex: Male

DRUGS (2)
  1. METFORMIN/SITAGLIPTIN [Suspect]
     Indication: DIABETES MELLITUS
     Dosage: 500/50 MG PO
     Route: 048
     Dates: start: 20100527, end: 20100606
  2. FENOFIBRATE [Suspect]
     Indication: HYPERLIPIDAEMIA
     Dosage: 160 MG PO
     Route: 048
     Dates: start: 20100527, end: 20100606

REACTIONS (1)
  - STEVENS-JOHNSON SYNDROME [None]
